FAERS Safety Report 7123594-4 (Version None)
Quarter: 2010Q4

REPORT INFORMATION
  Report Type: 
  Country: None (occurrence: None)
  Receive Date: 20101125
  Receipt Date: 20101122
  Transmission Date: 20110411
  Serious: Yes (Other)
  Sender: FDA-Public Use
  Company Number: US-BRISTOL-MYERS SQUIBB COMPANY-15377971

PATIENT
  Age: 61 Year
  Sex: Male

DRUGS (7)
  1. METFORMIN HCL [Suspect]
     Indication: TYPE 2 DIABETES MELLITUS
     Route: 048
  2. LISINOPRIL [Suspect]
  3. METOPROLOL TARTRATE [Suspect]
     Dosage: THERAPY DURATION:ABOUT 4 YEARS
  4. SIMVASTATIN [Suspect]
     Dosage: RESTARTED WITH 20MG
  5. NIASPAN [Suspect]
     Dosage: NIASPAN (EXTENDED RELEASE NIACIN)
  6. GLYBURIDE [Suspect]
  7. HYDROCHLOROTHIAZIDE [Suspect]
     Dosage: THERAPY DURATION:ABOUT 4 YEARS

REACTIONS (1)
  - HEPATOTOXICITY [None]
